FAERS Safety Report 21770851 (Version 1)
Quarter: 2022Q4

REPORT INFORMATION
  Report Type: Spontaneous
  Country: FR (occurrence: FR)
  Receive Date: 20221223
  Receipt Date: 20221223
  Transmission Date: 20230113
  Serious: Yes (Other)
  Sender: FDA-Public Use
  Company Number: None

PATIENT
  Age: 62 Year
  Sex: Male
  Weight: 107 kg

DRUGS (5)
  1. PREDNISONE [Suspect]
     Active Substance: PREDNISONE
     Indication: Sciatica
     Dosage: 20 MG, QD (REPORTED AS CORTANCYL 20 MG)
     Route: 048
     Dates: start: 20221013, end: 20221013
  2. NAPROXEN [Suspect]
     Active Substance: NAPROXEN
     Indication: Sciatica
     Dosage: 500 MG, Q12H (500 MG, BID)
     Route: 048
     Dates: start: 20221013, end: 20221013
  3. NAPROXEN [Suspect]
     Active Substance: NAPROXEN
     Indication: Gout
     Dosage: 500 MG, QD
     Route: 048
  4. COLCHICINE [Suspect]
     Active Substance: COLCHICINE
     Indication: Gout
     Dosage: 20 MG, QD
     Route: 048
     Dates: start: 20221013, end: 20221013
  5. HYDROCHLOROTHIAZIDE\NEBIVOLOL HYDROCHLORIDE [Concomitant]
     Active Substance: HYDROCHLOROTHIAZIDE\NEBIVOLOL HYDROCHLORIDE
     Indication: Hypertension
     Dosage: 1 DOSAGE FORM, QD (1 DF, QD, LONG-TERM)
     Route: 048

REACTIONS (3)
  - Melaena [Recovered/Resolved]
  - Loss of consciousness [Recovered/Resolved]
  - Fall [Recovered/Resolved]

NARRATIVE: CASE EVENT DATE: 20221016
